FAERS Safety Report 25679407 (Version 1)
Quarter: 2025Q3

REPORT INFORMATION
  Report Type: Spontaneous
  Country: CA (occurrence: CA)
  Receive Date: 20250814
  Receipt Date: 20250814
  Transmission Date: 20251021
  Serious: Yes (Other)
  Sender: TEVA
  Company Number: CA-TEVA-VS-3362726

PATIENT
  Age: 53 Year
  Sex: Male

DRUGS (9)
  1. DICLOFENAC [Suspect]
     Active Substance: DICLOFENAC
     Indication: Product used for unknown indication
     Route: 048
  2. DICLOFENAC [Suspect]
     Active Substance: DICLOFENAC
     Indication: Product used for unknown indication
     Route: 048
  3. DICLOFENAC [Suspect]
     Active Substance: DICLOFENAC
     Indication: Product used for unknown indication
     Route: 048
  4. VIOXX [Suspect]
     Active Substance: ROFECOXIB
     Indication: Product used for unknown indication
     Route: 065
  5. VIOXX [Suspect]
     Active Substance: ROFECOXIB
     Indication: Product used for unknown indication
     Route: 065
  6. METHOTREXATE [Concomitant]
     Active Substance: METHOTREXATE
     Indication: Product used for unknown indication
     Route: 065
  7. SULFASALAZINE [Concomitant]
     Active Substance: SULFASALAZINE
     Indication: Product used for unknown indication
     Route: 065
  8. HUMIRA [Suspect]
     Active Substance: ADALIMUMAB
     Indication: Product used for unknown indication
     Route: 058
  9. HUMIRA [Suspect]
     Active Substance: ADALIMUMAB
     Indication: Product used for unknown indication
     Route: 058

REACTIONS (15)
  - Gastric ulcer [Unknown]
  - Lymphocytosis [Unknown]
  - Arthralgia [Unknown]
  - Drug intolerance [Unknown]
  - Fatigue [Unknown]
  - Drug ineffective [Unknown]
  - Musculoskeletal stiffness [Unknown]
  - Joint swelling [Unknown]
  - Lymphocyte count increased [Unknown]
  - Tenderness [Unknown]
  - Back pain [Unknown]
  - Bone marrow oedema [Unknown]
  - Discomfort [Unknown]
  - Neck pain [Unknown]
  - Bone erosion [Unknown]
